FAERS Safety Report 23240672 (Version 1)
Quarter: 2023Q4

REPORT INFORMATION
  Report Type: Spontaneous
  Country: CN (occurrence: CN)
  Receive Date: 20231129
  Receipt Date: 20231129
  Transmission Date: 20240110
  Serious: Yes (Other)
  Sender: FDA-Public Use
  Company Number: CN-OTSUKA-2023_030735

PATIENT
  Age: 86 Year
  Sex: Male

DRUGS (2)
  1. TOLVAPTAN [Suspect]
     Active Substance: TOLVAPTAN
     Indication: Cardiac failure congestive
     Dosage: 3.75 MG, QD
     Route: 048
  2. TOLVAPTAN [Suspect]
     Active Substance: TOLVAPTAN
     Dosage: 7.5 MG, QD
     Route: 048

REACTIONS (5)
  - Metabolic alkalosis [Not Recovered/Not Resolved]
  - Respiratory acidosis [Not Recovered/Not Resolved]
  - Respiratory failure [Not Recovered/Not Resolved]
  - Dry mouth [Recovering/Resolving]
  - Thirst [Recovering/Resolving]
